FAERS Safety Report 6354817-7 (Version None)
Quarter: 2009Q3

REPORT INFORMATION
  Report Type: 
  Country: None (occurrence: None)
  Receive Date: 20090914
  Receipt Date: 20090904
  Transmission Date: 20100115
  Serious: Yes (Hospitalization)
  Sender: FDA-Public Use
  Company Number: US-JNJFOC-20090902853

PATIENT
  Age: 63 Year
  Sex: Female
  Weight: 58.97 kg

DRUGS (2)
  1. MS TYLENOL SEVERE ALLERGY [Suspect]
     Indication: SINUS HEADACHE
     Route: 048
     Dates: start: 20090901, end: 20090902
  2. SYNTHROID [Concomitant]
     Indication: HYPOTHYROIDISM

REACTIONS (4)
  - BALANCE DISORDER [None]
  - BLOOD POTASSIUM DECREASED [None]
  - FEELING ABNORMAL [None]
  - HYPOPHAGIA [None]
